FAERS Safety Report 15763860 (Version 1)
Quarter: 2018Q4

REPORT INFORMATION
  Report Type: Spontaneous
  Country: DE (occurrence: DE)
  Receive Date: 20181227
  Receipt Date: 20181227
  Transmission Date: 20190205
  Serious: Yes (Hospitalization, Other)
  Sender: FDA-Public Use
  Company Number: DE-TEVA-2018-DE-991392

PATIENT
  Age: 50 Year
  Sex: Male

DRUGS (5)
  1. LEPONEX / CLOZARIL (CLOZAPINE) [Interacting]
     Active Substance: CLOZAPINE
     Dosage: UNKNOWN
     Route: 048
     Dates: end: 2000
  2. LEPONEX / CLOZARIL (CLOZAPINE) [Interacting]
     Active Substance: CLOZAPINE
     Dosage: 300MG/DAY
     Route: 048
  3. LEPONEX / CLOZARIL (CLOZAPINE) [Interacting]
     Active Substance: CLOZAPINE
     Indication: SCHIZOPHRENIA
     Dosage: UNKNOWN
     Route: 048
     Dates: end: 2000
  4. DOXYCYCLINE. [Suspect]
     Active Substance: DOXYCYCLINE
     Indication: UPPER RESPIRATORY TRACT INFECTION
     Dosage: UNKNOWN
     Route: 065
     Dates: start: 2000, end: 2000
  5. LEPONEX / CLOZARIL (CLOZAPINE) [Interacting]
     Active Substance: CLOZAPINE
     Dosage: 300 MILLIGRAM DAILY;
     Route: 048

REACTIONS (4)
  - Drug interaction [Recovered/Resolved]
  - Upper respiratory tract infection [Recovered/Resolved]
  - Stupor [Recovered/Resolved]
  - Drug level increased [Recovered/Resolved]

NARRATIVE: CASE EVENT DATE: 2000
